FAERS Safety Report 6326325-0 (Version None)
Quarter: 2009Q3

REPORT INFORMATION
  Report Type: 
  Country: None (occurrence: None)
  Receive Date: 20090821
  Receipt Date: 20090817
  Transmission Date: 20100115
  Serious: Yes (Other)
  Sender: FDA-Public Use
  Company Number: CHPA2009US15930

PATIENT
  Age: 70 Year
  Sex: Female
  Weight: 59 kg

DRUGS (1)
  1. EXCEDRIN (MIGRAINE) [Suspect]
     Indication: HEADACHE
     Dosage: 6 DF, TID, ORAL
     Route: 048

REACTIONS (3)
  - EMPHYSEMA [None]
  - INTENTIONAL DRUG MISUSE [None]
  - OVERDOSE [None]
